FAERS Safety Report 10538508 (Version 2)
Quarter: 2014Q4

REPORT INFORMATION
  Report Type: Spontaneous
  Country: US (occurrence: US)
  Receive Date: 20141023
  Receipt Date: 20141023
  Transmission Date: 20150529
  Serious: Yes (Death, Hospitalization, Other)
  Sender: FDA-Public Use
  Company Number: US-GLAXOSMITHKLINE-A0915946A

PATIENT
  Age: 67 Year
  Sex: Female

DRUGS (2)
  1. AVANDIA [Suspect]
     Active Substance: ROSIGLITAZONE MALEATE
     Indication: DIABETES MELLITUS
     Dosage: 4 MG, QD
     Route: 048
     Dates: start: 200410, end: 200706
  2. ROSIGLITAZONE [Suspect]
     Active Substance: ROSIGLITAZONE
     Indication: DIABETES MELLITUS
     Dosage: 4 MG, QD
     Dates: start: 20070122, end: 20070125

REACTIONS (5)
  - Mitral valve incompetence [Fatal]
  - Cardiac failure congestive [Unknown]
  - Cardiac failure [Fatal]
  - Coronary artery disease [Fatal]
  - Myocardial infarction [Unknown]

NARRATIVE: CASE EVENT DATE: 199912
